FAERS Safety Report 5030300-6 (Version None)
Quarter: 2006Q2

REPORT INFORMATION
  Report Type: 
  Country: None (occurrence: None)
  Receive Date: 20060614
  Receipt Date: 20060530
  Transmission Date: 20061013
  Serious: Yes (Other)
  Sender: FDA-Public Use
  Company Number: GB200605006068

PATIENT
  Age: 16 Year
  Sex: Male

DRUGS (1)
  1. STRATTERA [Suspect]
     Indication: ATTENTION DEFICIT/HYPERACTIVITY DISORDER
     Dosage: 75 MG, DAILY (1/D), ORAL
     Route: 048

REACTIONS (4)
  - CARDIAC ARREST [None]
  - CONVULSION [None]
  - NAUSEA [None]
  - TREATMENT NONCOMPLIANCE [None]
